FAERS Safety Report 10371967 (Version 1)
Quarter: 2014Q3

REPORT INFORMATION
  Report Type: Other
  Country: US (occurrence: US)
  Receive Date: 20140808
  Receipt Date: 20140808
  Transmission Date: 20150326
  Serious: Yes (Hospitalization)
  Sender: FDA-Public Use
  Company Number: US-ENDO PHARMACEUTICALS INC-MEPE20140001

PATIENT
  Age: 69 Year
  Sex: Female

DRUGS (4)
  1. MEPERIDINE HYDROCHLORIDE TABLETS [Suspect]
     Active Substance: MEPERIDINE HYDROCHLORIDE
     Indication: PROCEDURAL PAIN
     Dosage: UNKNOWN
     Route: 065
  2. FENTANYL. [Suspect]
     Active Substance: FENTANYL
     Indication: PROCEDURAL PAIN
     Dosage: UNKNOWN
     Route: 065
  3. SELECTIVE SEROTONIN REUPTAKE INHIBITOR [Suspect]
     Active Substance: UNSPECIFIED INGREDIENT
     Indication: DEPRESSION
     Dosage: UNKNOWN
     Route: 065
  4. PACLITAXEL. [Concomitant]
     Active Substance: PACLITAXEL
     Indication: CHONDROSARCOMA
     Dosage: UNKNOWN
     Route: 065

REACTIONS (1)
  - Serotonin syndrome [Recovered/Resolved]

NARRATIVE: CASE EVENT DATE: 201312
